FAERS Safety Report 4404276-6 (Version None)
Quarter: 2004Q3

REPORT INFORMATION
  Report Type: 
  Country: None (occurrence: None)
  Receive Date: 20040719
  Receipt Date: 20040707
  Transmission Date: 20050211
  Serious: Yes (Life-Threatening, Hospitalization)
  Sender: FDA-Public Use
  Company Number: 2004215900DE

PATIENT
  Age: 66 Year
  Sex: Male
  Weight: 65 kg

DRUGS (1)
  1. ESTRACYT(ESTRAMUSTINE PHOSPHATE) CAPSULE [Suspect]
     Indication: PROSTATE CANCER METASTATIC
     Dosage: 300 MG, ORAL
     Route: 048
     Dates: start: 20040503

REACTIONS (1)
  - HYPOPHOSPHATAEMIA [None]
